FAERS Safety Report 21593631 (Version 2)
Quarter: 2022Q4

REPORT INFORMATION
  Report Type: Spontaneous
  Country: JP (occurrence: JP)
  Receive Date: 20221115
  Receipt Date: 20221124
  Transmission Date: 20230113
  Serious: Yes (Death)
  Sender: FDA-Public Use
  Company Number: JP-MALLINCKRODT-T202205982

PATIENT
  Age: 71 Year
  Sex: Male

DRUGS (1)
  1. NITRIC OXIDE [Suspect]
     Active Substance: NITRIC OXIDE
     Indication: Pulmonary hypertension
     Dosage: UNK (INHALATION)
     Route: 055

REACTIONS (1)
  - Sepsis [Fatal]
